FAERS Safety Report 24584740 (Version 1)
Quarter: 2024Q4

REPORT INFORMATION
  Report Type: Other
  Country: US (occurrence: US)
  Receive Date: 20241106
  Receipt Date: 20241106
  Transmission Date: 20250114
  Serious: Yes (Other)
  Sender: INNOGENIX, LLC
  Company Number: US-Innogenix, LLC-2164561

PATIENT
  Sex: Male

DRUGS (1)
  1. BACLOFEN [Suspect]
     Active Substance: BACLOFEN
     Indication: Product used for unknown indication

REACTIONS (2)
  - Paralysis [Recovering/Resolving]
  - Toxicity to various agents [Recovering/Resolving]
